FAERS Safety Report 16927198 (Version 1)
Quarter: 2019Q4

REPORT INFORMATION
  Report Type: Report from Study
  Country: GB (occurrence: GB)
  Receive Date: 20191016
  Receipt Date: 20191016
  Transmission Date: 20200122
  Serious: Yes (Death, Hospitalization)
  Sender: FDA-Public Use
  Company Number: PHHO2007GB023863

PATIENT
  Age: 36 Year
  Sex: Male
  Weight: 74.6 kg

DRUGS (3)
  1. PAZOPANIB [Suspect]
     Active Substance: PAZOPANIB
     Indication: COLORECTAL CANCER
     Dosage: QD
     Route: 065
     Dates: start: 20070806
  2. OXALIPLATIN. [Suspect]
     Active Substance: OXALIPLATIN
     Indication: COLORECTAL CANCER
     Dosage: QD
     Route: 065
     Dates: start: 20070806
  3. CAPECITABINE. [Suspect]
     Active Substance: CAPECITABINE
     Indication: COLORECTAL CANCER
     Dosage: BID
     Route: 065
     Dates: start: 20070806, end: 20070814

REACTIONS (3)
  - Lethargy [Recovering/Resolving]
  - Arrhythmia [Fatal]
  - Vomiting [Recovered/Resolved]

NARRATIVE: CASE EVENT DATE: 20070808
